FAERS Safety Report 5935388-3 (Version None)
Quarter: 2008Q4

REPORT INFORMATION
  Report Type: 
  Country: None (occurrence: None)
  Receive Date: 20081030
  Receipt Date: 20081023
  Transmission Date: 20090506
  Serious: Yes (Hospitalization)
  Sender: FDA-Public Use
  Company Number: US-KINGPHARMUSA00001-K200801222

PATIENT

DRUGS (11)
  1. ALTACE [Suspect]
     Dosage: 2.5 MG, QD
     Route: 048
     Dates: start: 20080601, end: 20080901
  2. TORREM                             /01036501/ [Suspect]
     Dosage: 5 MG, QD
     Route: 048
     Dates: start: 20080601, end: 20080901
  3. SORTIS                             /01326101/ [Suspect]
     Dosage: 40 MG, UNK
     Route: 048
     Dates: start: 20080601, end: 20080901
  4. DETRUSITOL                         /01350201/ [Suspect]
     Dosage: 4 MG, UNK
     Route: 048
     Dates: start: 20080601, end: 20080901
  5. VALVERDE                           /01561605/ [Suspect]
     Dosage: 2 DF, QD
     Route: 048
     Dates: start: 20080601, end: 20080901
  6. PARAGOL [Suspect]
     Route: 048
     Dates: start: 20080601, end: 20080901
  7. ASPIRIN [Concomitant]
     Dosage: 100 MG, UNK
     Route: 048
     Dates: start: 20070501, end: 20081001
  8. CONCOR                             /00802601/ [Concomitant]
     Dosage: 5 MG, UNK
     Route: 048
     Dates: start: 20040101, end: 20081001
  9. CALCIUM SANDOZ                     /00751501/ [Concomitant]
     Dosage: 1 DF, BID
     Route: 048
  10. LUDIOMIL                           /00331902/ [Concomitant]
     Dosage: 50 MG, UNK
     Route: 048
     Dates: start: 19780101, end: 20081001
  11. EFFEXOR XR [Concomitant]
     Dosage: 150 MG, QD
     Dates: start: 20070601

REACTIONS (6)
  - ANOREXIA [None]
  - HEPATIC NECROSIS [None]
  - HEPATOCELLULAR INJURY [None]
  - HYPERBILIRUBINAEMIA [None]
  - LIVER DISORDER [None]
  - WEIGHT DECREASED [None]
